FAERS Safety Report 9735536 (Version 1)
Quarter: 2013Q4

REPORT INFORMATION
  Report Type: Spontaneous
  Country: US (occurrence: US)
  Receive Date: 20131206
  Receipt Date: 20131206
  Transmission Date: 20140711
  Serious: Yes (Hospitalization)
  Sender: FDA-Public Use
  Company Number: US-GILEAD-2009-0023608

PATIENT
  Age: 70 Year
  Sex: Female
  Weight: 43.09 kg

DRUGS (12)
  1. LETAIRIS [Suspect]
     Indication: PULMONARY ARTERIAL HYPERTENSION
     Route: 048
     Dates: start: 20090709, end: 20090806
  2. DIOVAN [Concomitant]
  3. ATENOLOL [Concomitant]
  4. TRIAMT/HCTZ [Concomitant]
  5. ASPIRIN [Concomitant]
  6. PROVENTIL [Concomitant]
  7. ADVAIR DISKUS [Concomitant]
  8. AZATHIOPRINE [Concomitant]
  9. PREDNISONE [Concomitant]
  10. DARVOCET-N [Concomitant]
  11. NAPROXEN EC [Concomitant]
  12. PRILOSEC [Concomitant]

REACTIONS (2)
  - Dyspnoea [Recovering/Resolving]
  - Fluid retention [Recovering/Resolving]
